FAERS Safety Report 13746887 (Version 1)
Quarter: 2017Q3

REPORT INFORMATION
  Report Type: Spontaneous
  Country: CN (occurrence: CN)
  Receive Date: 20170712
  Receipt Date: 20170712
  Transmission Date: 20171127
  Serious: Yes (Other)
  Sender: FDA-Public Use
  Company Number: CN-BAYER-2017-129587

PATIENT
  Age: 85 Year
  Sex: Male
  Weight: 80 kg

DRUGS (7)
  1. TAMSULOSIN HYDROCHLORIDE. [Concomitant]
     Active Substance: TAMSULOSIN HYDROCHLORIDE
     Indication: BENIGN PROSTATIC HYPERPLASIA
     Dosage: 0.2 MG, QD
     Route: 048
     Dates: start: 20170524, end: 20170530
  2. VINPOCETINE [Concomitant]
     Active Substance: VINPOCETINE
     Indication: CARDIOVASCULAR DISORDER
     Dosage: 10 MG, QD
     Route: 048
     Dates: start: 20170522, end: 20170530
  3. ANNEIZHEN [Concomitant]
     Indication: HYPERTENSION
     Dosage: USUAL REGULAR USE, SINCE CIRCA 10 YEARS
  4. AVELOX [Suspect]
     Active Substance: MOXIFLOXACIN HYDROCHLORIDE
     Indication: INFECTION
     Dosage: 250 ML, QD
     Route: 041
     Dates: start: 20170523, end: 20170529
  5. LIPITOR [Concomitant]
     Active Substance: ATORVASTATIN CALCIUM
     Indication: ARTERIOSCLEROSIS
     Dosage: 20 MG, QD
     Route: 048
     Dates: start: 20170522, end: 20170530
  6. LEVOFLOXACIN. [Concomitant]
     Active Substance: LEVOFLOXACIN
     Indication: INFECTION
     Dosage: 0.2 G, BID
     Route: 041
     Dates: start: 20170519, end: 20170530
  7. CELECOXIB. [Concomitant]
     Active Substance: CELECOXIB
     Indication: PAIN
     Dosage: 0.2 G, QD
     Route: 048
     Dates: start: 20170523, end: 20170530

REACTIONS (1)
  - Gout [Recovering/Resolving]

NARRATIVE: CASE EVENT DATE: 20170525
